FAERS Safety Report 13850844 (Version 2)
Quarter: 2017Q3

REPORT INFORMATION
  Report Type: Report from Study
  Country: US (occurrence: US)
  Receive Date: 20170810
  Receipt Date: 20170816
  Transmission Date: 20171127
  Serious: No
  Sender: FDA-Public Use
  Company Number: PHEH2017US024355

PATIENT
  Sex: Female

DRUGS (2)
  1. PROLIA [Concomitant]
     Active Substance: DENOSUMAB
     Indication: PRODUCT USED FOR UNKNOWN INDICATION
     Route: 065
  2. COSENTYX [Suspect]
     Active Substance: SECUKINUMAB
     Indication: PRODUCT USED FOR UNKNOWN INDICATION
     Dosage: UNK UNK, QMO
     Route: 065

REACTIONS (12)
  - Pyrexia [Unknown]
  - Gastrointestinal disorder [Recovering/Resolving]
  - Blood pressure decreased [Unknown]
  - Chills [Recovering/Resolving]
  - Abdominal discomfort [Unknown]
  - Malaise [Unknown]
  - Dizziness [Recovering/Resolving]
  - Oropharyngeal pain [Unknown]
  - Paraesthesia [Recovering/Resolving]
  - Eyelid oedema [Unknown]
  - Nausea [Unknown]
  - Nasopharyngitis [Unknown]
